FAERS Safety Report 22970780 (Version 3)
Quarter: 2023Q4

REPORT INFORMATION
  Report Type: Spontaneous
  Country: US (occurrence: US)
  Receive Date: 20230922
  Receipt Date: 20231110
  Transmission Date: 20240110
  Serious: No
  Sender: FDA-Public Use
  Company Number: US-PFIZER INC-202300291460

PATIENT
  Age: 19 Year
  Sex: Female
  Weight: 68.04 kg

DRUGS (1)
  1. DEPO-PROVERA [Suspect]
     Active Substance: MEDROXYPROGESTERONE ACETATE
     Indication: Contraception
     Dosage: 0.65 ML, EVERY 3 MONTHS
     Dates: start: 20230409

REACTIONS (4)
  - Drug dose omission by device [Unknown]
  - Device delivery system issue [Unknown]
  - Syringe issue [Unknown]
  - Device defective [Unknown]

NARRATIVE: CASE EVENT DATE: 20230901
